FAERS Safety Report 10997082 (Version 3)
Quarter: 2017Q2

REPORT INFORMATION
  Report Type: Spontaneous
  Country: US (occurrence: US)
  Receive Date: 20150408
  Receipt Date: 20170515
  Transmission Date: 20170829
  Serious: No
  Sender: FDA-Public Use
  Company Number: US-BRISTOL-MYERS SQUIBB COMPANY-BMS-2014-007769

PATIENT

DRUGS (2)
  1. ABILIFY [Suspect]
     Active Substance: ARIPIPRAZOLE
     Indication: MAJOR DEPRESSION
     Dosage: 10 MG, UNK
     Route: 065
     Dates: start: 20120216, end: 201209
  2. ABILIFY [Suspect]
     Active Substance: ARIPIPRAZOLE
     Indication: SOMATIC SYMPTOM DISORDER
     Route: 065

REACTIONS (3)
  - Gambling disorder [Recovered/Resolved]
  - Trichotillomania [Recovered/Resolved]
  - Obsessive-compulsive disorder [Recovered/Resolved]
